FAERS Safety Report 11723575 (Version 2)
Quarter: 2016Q1

REPORT INFORMATION
  Report Type: Spontaneous
  Country: US (occurrence: US)
  Receive Date: 20151111
  Receipt Date: 20160212
  Transmission Date: 20160525
  Serious: No
  Sender: FDA-Public Use
  Company Number: US-ENDO PHARMACEUTICALS INC.-2015-003620

PATIENT
  Sex: Male
  Weight: 78.54 kg

DRUGS (3)
  1. XIAFLEX [Suspect]
     Active Substance: COLLAGENASE CLOSTRIDIUM HISTOLYTICUM
     Dosage: SECOND CYCLE OF 2 INJECTIONS IN THE PENIS
     Route: 026
     Dates: start: 2015
  2. XIAFLEX [Suspect]
     Active Substance: COLLAGENASE CLOSTRIDIUM HISTOLYTICUM
     Dosage: THIRD CYCLE OF 2 INJECTIONS IN THE PENIS
     Route: 026
     Dates: start: 20151015
  3. XIAFLEX [Suspect]
     Active Substance: COLLAGENASE CLOSTRIDIUM HISTOLYTICUM
     Indication: PEYRONIE^S DISEASE
     Dosage: FIRST CYCLE OF 2 INJECTIONS IN THE PENIS
     Route: 026
     Dates: start: 201502

REACTIONS (1)
  - Drug ineffective [Unknown]

NARRATIVE: CASE EVENT DATE: 2015
